FAERS Safety Report 8848260 (Version 2)
Quarter: 2015Q2

REPORT INFORMATION
  Report Type: Report from Study
  Country: US (occurrence: US)
  Receive Date: 20121018
  Receipt Date: 20150625
  Transmission Date: 20150821
  Serious: Yes (Other)
  Sender: FDA-Public Use
  Company Number: US-ROCHE-1139616

PATIENT
  Sex: Male

DRUGS (17)
  1. ANDROGEL [Concomitant]
     Active Substance: TESTOSTERONE
     Dosage: 50 MG/5G
     Route: 065
  2. SOLU-CORTEF [Concomitant]
     Active Substance: HYDROCORTISONE SODIUM SUCCINATE
     Route: 065
  3. VENTOLIN [Concomitant]
     Active Substance: ALBUTEROL SULFATE
     Indication: ASTHMA
     Dosage: AS PER NEEDED
     Route: 065
  4. NUTROPIN AQ [Suspect]
     Active Substance: SOMATROPIN
     Dosage: 175MCG1 TAB ALTERNATELY 150 MCG 1 TAB
     Route: 059
  5. NUTROPIN AQ [Suspect]
     Active Substance: SOMATROPIN
     Indication: PRODUCT USED FOR UNKNOWN INDICATION
     Route: 058
  6. SYNTHROID [Concomitant]
     Active Substance: LEVOTHYROXINE SODIUM
     Route: 048
  7. PROTROPIN [Suspect]
     Active Substance: SOMATREM
     Indication: HYPOPITUITARISM
     Route: 058
     Dates: start: 19921008
  8. PROTROPIN [Suspect]
     Active Substance: SOMATREM
     Route: 058
  9. SYNTHROID [Concomitant]
     Active Substance: LEVOTHYROXINE SODIUM
     Route: 065
  10. SYNTHROID [Concomitant]
     Active Substance: LEVOTHYROXINE SODIUM
     Route: 048
  11. DEXAMETHASONE. [Concomitant]
     Active Substance: DEXAMETHASONE
  12. SYNTHROID [Concomitant]
     Active Substance: LEVOTHYROXINE SODIUM
     Route: 048
  13. SYNTHROID [Concomitant]
     Active Substance: LEVOTHYROXINE SODIUM
     Route: 048
  14. LEXAPRO [Concomitant]
     Active Substance: ESCITALOPRAM OXALATE
     Route: 048
  15. PROTROPIN [Suspect]
     Active Substance: SOMATREM
     Route: 058
     Dates: start: 19921212
  16. DESMOPRESSIN [Concomitant]
     Active Substance: DESMOPRESSIN
     Route: 048
  17. CORTEF [Concomitant]
     Active Substance: HYDROCORTISONE
     Dosage: 5MG TABLET1.5TAB IN AM AND 1 IN PM
     Route: 048

REACTIONS (5)
  - Malaise [Unknown]
  - Varicella [Unknown]
  - Enuresis [Unknown]
  - Weight decreased [Unknown]
  - Vomiting [Unknown]
